FAERS Safety Report 9365386 (Version 1)
Quarter: 2013Q2

REPORT INFORMATION
  Report Type: Spontaneous
  Country: FR (occurrence: FR)
  Receive Date: 20130625
  Receipt Date: 20130625
  Transmission Date: 20140414
  Serious: Yes (Other)
  Sender: FDA-Public Use
  Company Number: FR-ROCHE-1239006

PATIENT
  Age: 40 Year
  Sex: Female

DRUGS (4)
  1. ZELBORAF [Suspect]
     Indication: MALIGNANT MELANOMA
     Route: 048
     Dates: start: 20130112
  2. OMEPRAZOLE [Concomitant]
     Route: 048
     Dates: start: 20130328
  3. CELLUVISC [Concomitant]
  4. DACRYOSERUM [Concomitant]

REACTIONS (1)
  - Sjogren^s syndrome [Unknown]
